FAERS Safety Report 5489497-6 (Version None)
Quarter: 2007Q4

REPORT INFORMATION
  Report Type: 
  Country: None (occurrence: None)
  Receive Date: 20071009
  Receipt Date: 20070420
  Transmission Date: 20080405
  Serious: Yes (Other)
  Sender: FDA-Public Use
  Company Number: US-JNJFOC-20070405076

PATIENT
  Age: 21 Year
  Sex: Female
  Weight: 61.2356 kg

DRUGS (3)
  1. JOLIVETTE (NORETHISTERONE) TABLETS [Suspect]
     Indication: DRUG USE FOR UNKNOWN INDICATION
     Dosage: 1 DOSE(S), 1 IN 1 DAY, ORAL
     Route: 048
     Dates: start: 20061001, end: 20070416
  2. MINOCYCLINE HCL [Suspect]
     Indication: ACNE
     Dosage: 90 MG, 1 IN 1 DAY, ORAL
     Route: 048
     Dates: start: 20070303, end: 20070416
  3. TRETINOIN [Concomitant]

REACTIONS (2)
  - DRUG EXPOSURE DURING PREGNANCY [None]
  - UNINTENDED PREGNANCY [None]
